FAERS Safety Report 18876769 (Version 1)
Quarter: 2021Q1

REPORT INFORMATION
  Report Type: Spontaneous
  Country: US (occurrence: US)
  Receive Date: 20210210
  Receipt Date: 20210210
  Transmission Date: 20210420
  Serious: No
  Sender: FDA-Public Use
  Company Number: US-RIGEL PHARMACEUTICALS, INC.-2021FOS000004

PATIENT
  Sex: Female

DRUGS (2)
  1. TAVALISSE [Suspect]
     Active Substance: FOSTAMATINIB
     Indication: NON-HODGKIN^S LYMPHOMA
  2. TAVALISSE [Suspect]
     Active Substance: FOSTAMATINIB
     Indication: LYMPHOMA
     Dosage: 100 MG, BID
     Route: 048
     Dates: start: 20201209

REACTIONS (5)
  - Dry skin [Unknown]
  - Acne [Unknown]
  - Contusion [Unknown]
  - Platelet count decreased [Unknown]
  - Off label use [Unknown]
